FAERS Safety Report 21698658 (Version 1)
Quarter: 2022Q4

REPORT INFORMATION
  Report Type: Report from Study
  Country: MX (occurrence: MX)
  Receive Date: 20221208
  Receipt Date: 20221208
  Transmission Date: 20230113
  Serious: Yes (Life-Threatening, Hospitalization, Other)
  Sender: FDA-Public Use
  Company Number: MX-002147023-PHHY2015MX087400

PATIENT
  Sex: Female
  Weight: 84 kg

DRUGS (8)
  1. TRILEPTAL [Suspect]
     Active Substance: OXCARBAZEPINE
     Indication: Seizure
     Dosage: 1.5 DOSAGE FORM, Q12H (300 MG), Q12H
     Route: 048
     Dates: start: 2011
  2. TRILEPTAL [Suspect]
     Active Substance: OXCARBAZEPINE
     Indication: Epilepsy
     Dosage: 2 DOSAGE FORM, Q12H (300 MG)
     Route: 065
     Dates: start: 201203
  3. TRILEPTAL [Suspect]
     Active Substance: OXCARBAZEPINE
     Dosage: 1.5 DOSAGE FORM,  (450 MG TOTAL)
     Route: 065
     Dates: start: 2015
  4. TRILEPTAL [Suspect]
     Active Substance: OXCARBAZEPINE
     Dosage: 300 MG
     Route: 048
  5. TRILEPTAL [Suspect]
     Active Substance: OXCARBAZEPINE
     Dosage: 450 MG
     Route: 065
  6. TRILEPTAL [Suspect]
     Active Substance: OXCARBAZEPINE
     Dosage: 1 DOSAGE FORM,  (600MG) Q12H
     Route: 048
  7. SINFONIL [Concomitant]
     Indication: Product used for unknown indication
     Dosage: UNK
     Route: 065
  8. DEPRECTAL [Concomitant]
     Indication: Product used for unknown indication
     Dosage: UNK
     Route: 065

REACTIONS (12)
  - Seizure [Unknown]
  - Seizure [Recovered/Resolved]
  - Tongue biting [Unknown]
  - Seizure [Recovered/Resolved]
  - Seizure [Recovered/Resolved]
  - Cyanosis [Not Recovered/Not Resolved]
  - Hypoxia [Unknown]
  - Weight increased [Not Recovered/Not Resolved]
  - Headache [Recovered/Resolved]
  - Decreased appetite [Recovered/Resolved]
  - Wrong technique in product usage process [Unknown]
  - Off label use [Unknown]

NARRATIVE: CASE EVENT DATE: 20150101
